FAERS Safety Report 4743542-1 (Version None)
Quarter: 2005Q3

REPORT INFORMATION
  Report Type: 
  Country: None (occurrence: None)
  Receive Date: 20050812
  Receipt Date: 20050803
  Transmission Date: 20060218
  Serious: Yes (Death)
  Sender: FDA-Public Use
  Company Number: US-JNJFOC-20050502455

PATIENT
  Sex: Male
  Weight: 105.24 kg

DRUGS (6)
  1. REMICADE [Suspect]
     Indication: RHEUMATOID ARTHRITIS
     Route: 042
  2. NORVASC [Concomitant]
  3. HYDROCHLOROTHIAZIDE [Concomitant]
  4. METHOTREXATE [Concomitant]
  5. VIOXX [Concomitant]
  6. FOLIC ACID [Concomitant]

REACTIONS (3)
  - MENTAL STATUS CHANGES [None]
  - RESPIRATORY FAILURE [None]
  - WEST NILE VIRAL INFECTION [None]
